FAERS Safety Report 5531296-0 (Version None)
Quarter: 2007Q4

REPORT INFORMATION
  Report Type: 
  Country: None (occurrence: None)
  Receive Date: 20071128
  Receipt Date: 20071114
  Transmission Date: 20080405
  Serious: Yes (Other)
  Sender: FDA-Public Use
  Company Number: 100#08#2007-04800

PATIENT
  Age: 35 Year
  Sex: Female

DRUGS (3)
  1. ISONIAZID [Suspect]
     Indication: LYMPHADENOPATHY
     Dosage: 300 MG ; 100 MG/DAY THEN INCREASED TO 200 MG/DAY (REINTRODUCTION)
  2. PYRIDOXINE                                                         (PY [Concomitant]
  3. ANTI-TUBERCULAR THERAPY                    (ANTI-TUBERCULAR THERAPY) [Concomitant]

REACTIONS (1)
  - CEREBELLAR SYNDROME [None]
